FAERS Safety Report 12392490 (Version 1)
Quarter: 2016Q2

REPORT INFORMATION
  Report Type: Spontaneous
  Country: US (occurrence: US)
  Receive Date: 20160523
  Receipt Date: 20160523
  Transmission Date: 20160815
  Serious: No
  Sender: FDA-Public Use
  Company Number: US-GLENMARK PHARMACEUTICALS INC, USA.-2015GMK018967

PATIENT
  Age: 11 Year
  Sex: Female

DRUGS (5)
  1. MONTELUKAST [Suspect]
     Active Substance: MONTELUKAST SODIUM
     Indication: CONVERSION DISORDER
     Dosage: UNK
  2. VALIUM [Concomitant]
     Active Substance: DIAZEPAM
     Indication: CONVERSION DISORDER
     Dosage: UNK
  3. PREDNISONE. [Concomitant]
     Active Substance: PREDNISONE
     Indication: CONVERSION DISORDER
     Dosage: UNK
  4. IBUPROFEN. [Concomitant]
     Active Substance: IBUPROFEN
     Indication: CONVERSION DISORDER
     Dosage: UNK
  5. NAPROXEN. [Suspect]
     Active Substance: NAPROXEN
     Indication: CONVERSION DISORDER
     Dosage: UNK

REACTIONS (1)
  - Off label use [Unknown]
